FAERS Safety Report 7632471-1 (Version None)
Quarter: 2011Q3

REPORT INFORMATION
  Report Type: 
  Country: None (occurrence: None)
  Receive Date: 20110725
  Receipt Date: 20100917
  Transmission Date: 20111222
  Serious: No
  Sender: FDA-Public Use
  Company Number: US-BRISTOL-MYERS SQUIBB COMPANY-15291073

PATIENT
  Age: 80 Year
  Sex: Male
  Weight: 86 kg

DRUGS (12)
  1. IMDUR [Concomitant]
  2. ATENOLOL [Concomitant]
  3. TYLENOL-500 [Concomitant]
  4. FLOMAX [Concomitant]
  5. TRAMADOL HCL [Concomitant]
  6. RANITIDINE [Concomitant]
  7. COUMADIN [Suspect]
     Indication: ATRIAL FIBRILLATION
     Dosage: ABOUT 5 MONTHS
  8. NIASPAN [Concomitant]
  9. JANUVIA [Concomitant]
  10. VYTORIN [Concomitant]
  11. NEURONTIN [Concomitant]
     Dosage: 3 PILLS
  12. NAPROXEN [Concomitant]

REACTIONS (1)
  - HAEMORRHAGE [None]
